FAERS Safety Report 17599542 (Version 1)
Quarter: 2020Q1

REPORT INFORMATION
  Report Type: Other
  Country: JP (occurrence: JP)
  Receive Date: 20200330
  Receipt Date: 20200330
  Transmission Date: 20200409
  Serious: Yes (Hospitalization, Other)
  Sender: FDA-Public Use
  Company Number: JP-ALLIED PHARMA-000008

PATIENT
  Age: 70 Year
  Sex: Female

DRUGS (9)
  1. PRAMIPEXOLE/PRAMIPEXOLE DIHYDROCHLORIDE [Suspect]
     Active Substance: PRAMIPEXOLE DIHYDROCHLORIDE
     Indication: PARKINSON^S DISEASE
     Dosage: 1.5 MG/DAY, EXTENDED RELEASE
  2. L-DOPA COMBINATION (CARBIDOPA\LEVODOPA) [Suspect]
     Active Substance: CARBIDOPA\LEVODOPA
     Indication: PARKINSON^S DISEASE
     Dosage: 600 MG/DAY
     Route: 042
  3. L-DOPA COMBINATION (CARBIDOPA\LEVODOPA) [Suspect]
     Active Substance: CARBIDOPA\LEVODOPA
     Indication: PARKINSON^S DISEASE
     Dosage: 900 MG/DAY
     Route: 042
  4. L-DOPA COMBINATION (CARBIDOPA\LEVODOPA) [Suspect]
     Active Substance: CARBIDOPA\LEVODOPA
     Indication: PARKINSON^S DISEASE
     Dosage: 600 MG/DAY
     Dates: start: 201208
  5. PRAMIPEXOLE/PRAMIPEXOLE DIHYDROCHLORIDE [Suspect]
     Active Substance: PRAMIPEXOLE DIHYDROCHLORIDE
     Indication: PARKINSON^S DISEASE
     Dosage: 3 MG/DAY RAPID RELEASE
     Dates: start: 201208
  6. SELEGILINE [Suspect]
     Active Substance: SELEGILINE
     Indication: PARKINSON^S DISEASE
     Dosage: 5 MG / DAY
     Route: 048
     Dates: start: 201208
  7. ENTACAPONE. [Suspect]
     Active Substance: ENTACAPONE
     Indication: PARKINSON^S DISEASE
     Dosage: 300 MG/DAY
  8. L-DOPA COMBINATION (CARBIDOPA\LEVODOPA) [Suspect]
     Active Substance: CARBIDOPA\LEVODOPA
     Indication: PARKINSON^S DISEASE
     Dosage: 600 MG/DAY
     Route: 042
  9. L-DOPA COMBINATION (CARBIDOPA\LEVODOPA) [Suspect]
     Active Substance: CARBIDOPA\LEVODOPA
     Indication: PARKINSON^S DISEASE
     Dosage: 150 MG/DAY
     Route: 042

REACTIONS (1)
  - Parkinsonism hyperpyrexia syndrome [Recovered/Resolved]

NARRATIVE: CASE EVENT DATE: 201209
